FAERS Safety Report 9402748 (Version 1)
Quarter: 2013Q3

REPORT INFORMATION
  Report Type: Spontaneous
  Country: FR (occurrence: FR)
  Receive Date: 20130716
  Receipt Date: 20130716
  Transmission Date: 20140515
  Serious: Yes (Other)
  Sender: FDA-Public Use
  Company Number: FR-PFIZER INC-2013206638

PATIENT
  Age: 71 Year
  Sex: Female

DRUGS (8)
  1. TRIATEC [Suspect]
     Dosage: 2.5 MG, DAILY
     Route: 048
  2. TRIATEC [Suspect]
     Dosage: 5 MG, DAILY
     Route: 048
     Dates: end: 20120918
  3. TAHOR [Concomitant]
     Dosage: UNK
  4. LEVOTHYROX [Concomitant]
     Dosage: UNK
  5. OMEPRAZOLE [Concomitant]
     Dosage: UNK
  6. BROMAZEPAM [Concomitant]
     Dosage: UNK
  7. FLUOXETINE [Concomitant]
     Dosage: UNK
  8. DECONTRACTYL [Concomitant]
     Dosage: UNK
     Dates: start: 20120916, end: 20120918

REACTIONS (5)
  - Angioedema [Recovered/Resolved]
  - Tongue oedema [Recovered/Resolved]
  - Dysphonia [Recovered/Resolved]
  - Erythema [Recovered/Resolved]
  - Histamine level decreased [Unknown]
